FAERS Safety Report 7422774-8 (Version None)
Quarter: 2011Q2

REPORT INFORMATION
  Report Type: 
  Country: None (occurrence: None)
  Receive Date: 20110414
  Receipt Date: 20110414
  Transmission Date: 20111010
  Serious: No
  Sender: FDA-Public Use
  Company Number: None

PATIENT
  Sex: Female
  Weight: 62.5964 kg

DRUGS (1)
  1. LEVAQUIN [Suspect]
     Indication: PNEUMONIA
     Dosage: 750MG ONCE DAILY ORAL
     Route: 048
     Dates: start: 20110320, end: 20110323

REACTIONS (4)
  - FATIGUE [None]
  - ARTHRALGIA [None]
  - TENDON PAIN [None]
  - MUSCULAR WEAKNESS [None]
